FAERS Safety Report 8787727 (Version 1)
Quarter: 2012Q4

REPORT INFORMATION
  Report Type: 
  Country: US (occurrence: US)
  Receive Date: 20120914
  Receipt Date: 20120914
  Transmission Date: 20130627
  Serious: Yes (Hospitalization)
  Sender: FDA-Public Use
  Company Number: US-VERTEX PHARMACEUTICAL INC.-AE-2012-008938

PATIENT
  Age: 53 Year
  Sex: Female
  Weight: 72.73 kg

DRUGS (4)
  1. INCIVEK [Suspect]
     Indication: HEPATITIS C
     Route: 048
     Dates: start: 20120525
  2. RIBASPHERE [Concomitant]
     Indication: HEPATITIS C
     Dates: start: 20120525
  3. PEGASYS [Concomitant]
     Indication: HEPATITIS C
     Route: 058
     Dates: start: 20120525, end: 20120612
  4. PEGASYS [Concomitant]
     Route: 058
     Dates: start: 20120612

REACTIONS (2)
  - Platelet count decreased [Not Recovered/Not Resolved]
  - Drug dose omission [Recovered/Resolved]
